FAERS Safety Report 9503532 (Version 1)
Quarter: 2013Q1

REPORT INFORMATION
  Report Type: Spontaneous
  Country: US (occurrence: None)
  Receive Date: 20130130
  Receipt Date: 20130130
  Transmission Date: 20140127
  Serious: Yes (Hospitalization)
  Sender: FDA-Public Use
  Company Number: US2012100005017

PATIENT
  Age: 72 Year
  Sex: 0

DRUGS (3)
  1. BYETTA [Suspect]
     Indication: TYPE 2 DIABETES MELLITUS
     Route: 058
     Dates: start: 201202, end: 201209
  2. METFORMIN [Concomitant]
  3. BENICAR [Concomitant]

REACTIONS (3)
  - Pancreatitis [None]
  - Drug intolerance [None]
  - Vomiting [None]
